FAERS Safety Report 5066797-5 (Version None)
Quarter: 2006Q3

REPORT INFORMATION
  Report Type: 
  Country: None (occurrence: None)
  Receive Date: 20060726
  Receipt Date: 20060714
  Transmission Date: 20061208
  Serious: Yes (Hospitalization)
  Sender: FDA-Public Use
  Company Number: 2006065174

PATIENT
  Age: 75 Year
  Sex: Male
  Weight: 78 kg

DRUGS (4)
  1. SUTENT [Suspect]
     Indication: METASTATIC RENAL CELL CARCINOMA
     Dosage: SEE IMAGE
     Route: 048
     Dates: start: 20060224, end: 20060503
  2. SUTENT [Suspect]
     Indication: METASTATIC RENAL CELL CARCINOMA
     Dosage: SEE IMAGE
     Route: 048
     Dates: start: 20060525
  3. NORVASC [Concomitant]
  4. CIPROFLOXACIN [Concomitant]

REACTIONS (3)
  - BIOPSY LIVER ABNORMAL [None]
  - CHOLELITHIASIS [None]
  - JAUNDICE [None]
